FAERS Safety Report 24099767 (Version 1)
Quarter: 2024Q3

REPORT INFORMATION
  Report Type: Spontaneous
  Country: US (occurrence: US)
  Receive Date: 20240716
  Receipt Date: 20240716
  Transmission Date: 20241016
  Serious: No
  Sender: NOVO NORDISK
  Company Number: US-NOVOPROD-1217608

PATIENT
  Sex: Female

DRUGS (2)
  1. OZEMPIC [Suspect]
     Active Substance: SEMAGLUTIDE
     Indication: Type 2 diabetes mellitus
     Dosage: 0.25MG
     Route: 058
  2. NovoFine Plus 4mm (32G) [Concomitant]
     Indication: Device therapy
     Route: 058

REACTIONS (5)
  - Renal cyst [Recovered/Resolved]
  - Dysphonia [Not Recovered/Not Resolved]
  - Mouth cyst [Recovered/Resolved]
  - Unevaluable event [Not Recovered/Not Resolved]
  - Constipation [Not Recovered/Not Resolved]
